FAERS Safety Report 4974248-1 (Version None)
Quarter: 2006Q2

REPORT INFORMATION
  Report Type: 
  Country: None (occurrence: None)
  Receive Date: 20060417
  Receipt Date: 20051025
  Transmission Date: 20061013
  Serious: Yes (Hospitalization, Disabling)
  Sender: FDA-Public Use
  Company Number: US-MERCK-0510USA09222

PATIENT
  Age: 56 Year
  Sex: Male
  Weight: 95 kg

DRUGS (2)
  1. VIOXX [Suspect]
     Indication: PAIN
     Route: 048
     Dates: start: 20000201, end: 20041101
  2. VIOXX [Suspect]
     Indication: ARTHRITIS
     Route: 048
     Dates: start: 20000201, end: 20041101

REACTIONS (32)
  - ACUTE RESPIRATORY FAILURE [None]
  - ANAEMIA [None]
  - ANOREXIA [None]
  - BENIGN PROSTATIC HYPERPLASIA [None]
  - BLADDER MASS [None]
  - CAROTID ARTERY OCCLUSION [None]
  - CATHETER RELATED COMPLICATION [None]
  - CEREBROVASCULAR ACCIDENT [None]
  - CONVULSION [None]
  - DEEP VEIN THROMBOSIS [None]
  - DEPRESSION [None]
  - DYSLIPIDAEMIA [None]
  - ENCEPHALOPATHY [None]
  - GASTROOESOPHAGEAL REFLUX DISEASE [None]
  - GOUT [None]
  - HAEMATURIA [None]
  - HEMIPARESIS [None]
  - HEPATIC MASS [None]
  - HYPERTENSION [None]
  - HYPOAESTHESIA [None]
  - HYPONATRAEMIA [None]
  - LUNG NEOPLASM [None]
  - MENTAL STATUS CHANGES [None]
  - PERIPHERAL VASCULAR DISORDER [None]
  - PNEUMONIA [None]
  - POST-TRAUMATIC STRESS DISORDER [None]
  - PULMONARY EMBOLISM [None]
  - RECTAL HAEMORRHAGE [None]
  - RENAL FAILURE ACUTE [None]
  - RENAL FAILURE CHRONIC [None]
  - TRANSIENT ISCHAEMIC ATTACK [None]
  - URINARY TRACT INFECTION [None]
